FAERS Safety Report 24923068 (Version 1)
Quarter: 2025Q1

REPORT INFORMATION
  Report Type: Spontaneous
  Country: US (occurrence: None)
  Receive Date: 20250204
  Receipt Date: 20250204
  Transmission Date: 20250409
  Serious: No
  Sender: FDA-CTU
  Company Number: None

PATIENT
  Age: 17 Year
  Sex: Female

DRUGS (2)
  1. ADEMPAS [Suspect]
     Active Substance: RIOCIGUAT
     Indication: Heritable pulmonary arterial hypertension
     Dates: start: 20250123
  2. ADEMPAS [Suspect]
     Active Substance: RIOCIGUAT
     Indication: Pulmonary arterial hypertension

REACTIONS (8)
  - Nausea [None]
  - Vomiting [None]
  - Dizziness [None]
  - Swelling face [None]
  - Eye swelling [None]
  - Headache [None]
  - Nasal congestion [None]
  - Adverse drug reaction [None]

NARRATIVE: CASE EVENT DATE: 20250203
